FAERS Safety Report 11838569 (Version 4)
Quarter: 2018Q1

REPORT INFORMATION
  Report Type: Spontaneous
  Country: US (occurrence: US)
  Receive Date: 20151215
  Receipt Date: 20180215
  Transmission Date: 20180508
  Serious: Yes (Disabling, Other)
  Sender: FDA-Public Use
  Company Number: US-JAZZ-JPI-P-033408

PATIENT
  Sex: Male
  Weight: 88.64 kg

DRUGS (16)
  1. XYREM [Suspect]
     Active Substance: SODIUM OXYBATE
     Indication: NARCOLEPSY
     Dosage: ALSO TESTING DIFFERENT DOSES
     Route: 048
  2. ALPRAZOLAM. [Concomitant]
     Active Substance: ALPRAZOLAM
     Indication: ANXIETY
     Dosage: 2 MG, QID
  3. XYREM [Suspect]
     Active Substance: SODIUM OXYBATE
     Dosage: 6 TO 7.5 G FIRST DOSE
     Route: 048
  4. ACETAMINOPHEN W/HYDROCODONE BITARTRATE [Concomitant]
     Active Substance: ACETAMINOPHEN\HYDROCODONE BITARTRATE
     Indication: PAIN
  5. XYREM [Suspect]
     Active Substance: SODIUM OXYBATE
     Indication: INSOMNIA
     Dosage: 4.5 G, BID
     Route: 048
     Dates: start: 20070214
  6. XANAX [Suspect]
     Active Substance: ALPRAZOLAM
     Indication: PRODUCT USED FOR UNKNOWN INDICATION
  7. DEXEDRINE [Suspect]
     Active Substance: DEXTROAMPHETAMINE SULFATE
     Indication: NARCOLEPSY
     Dosage: UNK UNK, SINGLE
     Route: 048
     Dates: start: 2011
  8. SELEGILINE [Concomitant]
     Active Substance: SELEGILINE
     Indication: DEPRESSION
     Dosage: 20 MG, QD
  9. XYREM [Suspect]
     Active Substance: SODIUM OXYBATE
     Dosage: SECOND DOSE UNKNOWN
     Route: 048
  10. DEXAMFETAMINE [Concomitant]
     Active Substance: DEXTROAMPHETAMINE
     Indication: NARCOLEPSY
     Route: 048
     Dates: start: 2011
  11. AMBIEN [Concomitant]
     Active Substance: ZOLPIDEM TARTRATE
     Indication: INSOMNIA
  12. DOSTINEX [Concomitant]
     Active Substance: CABERGOLINE
     Indication: DOPAMINERGIC DRUG THERAPY
  13. XYREM [Suspect]
     Active Substance: SODIUM OXYBATE
     Dosage: 4.5 G, BID
     Route: 048
     Dates: start: 2013, end: 2015
  14. PREGABALIN. [Concomitant]
     Active Substance: PREGABALIN
     Indication: PAIN
     Dates: start: 2011
  15. CYMBALTA [Suspect]
     Active Substance: DULOXETINE HYDROCHLORIDE
     Indication: PRODUCT USED FOR UNKNOWN INDICATION
  16. NAMENDA [Concomitant]
     Active Substance: MEMANTINE HYDROCHLORIDE
     Indication: PROPHYLAXIS

REACTIONS (23)
  - Intervertebral disc protrusion [Not Recovered/Not Resolved]
  - Scar [Not Recovered/Not Resolved]
  - Drug ineffective [Unknown]
  - Drug withdrawal syndrome [Not Recovered/Not Resolved]
  - Mass [Not Recovered/Not Resolved]
  - Muscle twitching [Not Recovered/Not Resolved]
  - Umbilical hernia [Not Recovered/Not Resolved]
  - Post procedural complication [Not Recovered/Not Resolved]
  - Foot deformity [Not Recovered/Not Resolved]
  - Feeling hot [Not Recovered/Not Resolved]
  - Spinal pain [Not Recovered/Not Resolved]
  - Dysphemia [Not Recovered/Not Resolved]
  - Anorexia nervosa [Unknown]
  - Skin discolouration [Not Recovered/Not Resolved]
  - Disability [Not Recovered/Not Resolved]
  - Stress [Not Recovered/Not Resolved]
  - Inguinal hernia [Not Recovered/Not Resolved]
  - Gait disturbance [Not Recovered/Not Resolved]
  - Groin pain [Not Recovered/Not Resolved]
  - Scoliosis [Not Recovered/Not Resolved]
  - Loss of personal independence in daily activities [Not Recovered/Not Resolved]
  - Back pain [Not Recovered/Not Resolved]
  - Intentional product misuse [Unknown]

NARRATIVE: CASE EVENT DATE: 2013
